FAERS Safety Report 5521653-0 (Version None)
Quarter: 2007Q4

REPORT INFORMATION
  Report Type: 
  Country: None (occurrence: None)
  Receive Date: 20071115
  Receipt Date: 20071108
  Transmission Date: 20080405
  Serious: Yes (Death, Hospitalization)
  Sender: FDA-Public Use
  Company Number: 028-C5013-07031002

PATIENT
  Age: 80 Year
  Sex: Female

DRUGS (14)
  1. CC-5013               (LENALIDOMIDE) [Suspect]
     Indication: MULTIPLE MYELOMA
     Dosage: 25 MG, DAILY, ORAL: 15 MG, DAILY, ORAL: 10MG, DAILY, ORAL
     Route: 048
     Dates: start: 20061021, end: 20061101
  2. CC-5013               (LENALIDOMIDE) [Suspect]
     Indication: MULTIPLE MYELOMA
     Dosage: 25 MG, DAILY, ORAL: 15 MG, DAILY, ORAL: 10MG, DAILY, ORAL
     Route: 048
     Dates: start: 20061207, end: 20070101
  3. CC-5013               (LENALIDOMIDE) [Suspect]
     Indication: MULTIPLE MYELOMA
     Dosage: 25 MG, DAILY, ORAL: 15 MG, DAILY, ORAL: 10MG, DAILY, ORAL
     Route: 048
     Dates: start: 20070216
  4. DEXAMETHASONE TAB [Suspect]
     Indication: MULTIPLE MYELOMA
     Dosage: 20 MG, OD DAYS 1-4, ORAL
     Route: 048
     Dates: start: 20061021, end: 20070303
  5. METOPROLOL [Concomitant]
  6. LYRICA [Concomitant]
  7. EC ASA                                      (ACETYLSALICYLIC ACID) [Concomitant]
  8. VENTOLIN [Concomitant]
  9. SPIRONOLACTONE [Concomitant]
  10. HYDROCORTISONE [Concomitant]
  11. CLONAZEPAM [Concomitant]
  12. HEPARIN [Concomitant]
  13. ATROVENT [Concomitant]
  14. ATIVAN [Concomitant]

REACTIONS (9)
  - BLOOD CREATINE INCREASED [None]
  - DEHYDRATION [None]
  - LOBAR PNEUMONIA [None]
  - MALAISE [None]
  - NEUTROPENIA [None]
  - PLATELET COUNT DECREASED [None]
  - PNEUMONIA [None]
  - RESPIRATORY FAILURE [None]
  - WHITE BLOOD CELL COUNT DECREASED [None]
